FAERS Safety Report 7436985-9 (Version None)
Quarter: 2011Q2

REPORT INFORMATION
  Report Type: 
  Country: None (occurrence: None)
  Receive Date: 20110426
  Receipt Date: 20090715
  Transmission Date: 20111010
  Serious: No
  Sender: FDA-Public Use
  Company Number: 2009BI022154

PATIENT
  Sex: Female

DRUGS (1)
  1. TYSABRI [Suspect]
     Indication: MULTIPLE SCLEROSIS
     Route: 042
     Dates: start: 20061101

REACTIONS (12)
  - NEPHROLITHIASIS [None]
  - INFECTION [None]
  - PYREXIA [None]
  - VIRAL INFECTION [None]
  - TREMOR [None]
  - SINUSITIS [None]
  - BLOOD URINE PRESENT [None]
  - FLANK PAIN [None]
  - H1N1 INFLUENZA [None]
  - FACIAL SPASM [None]
  - INFLUENZA [None]
  - COORDINATION ABNORMAL [None]
